FAERS Safety Report 5688192-8 (Version None)
Quarter: 2008Q1

REPORT INFORMATION
  Report Type: 
  Country: None (occurrence: None)
  Receive Date: 20080327
  Receipt Date: 20080312
  Transmission Date: 20080703
  Serious: Yes (Other)
  Sender: FDA-Public Use
  Company Number: SPV1-2008-00531

PATIENT
  Sex: Male

DRUGS (2)
  1. ANAGRELIDE HYDROCHLORIDE [Suspect]
     Indication: ESSENTIAL THROMBOCYTHAEMIA
     Dosage: 1.0 MG AM AND 2.0 MG EVENING, ORAL
     Route: 048
  2. PEGASYS [Suspect]
     Indication: MYELOFIBROSIS
     Dosage: 135 UG, 1X/WEEK

REACTIONS (3)
  - DRUG INTERACTION [None]
  - MYELOFIBROSIS [None]
  - PLATELET COUNT DECREASED [None]
